FAERS Safety Report 16181144 (Version 2)
Quarter: 2019Q2

REPORT INFORMATION
  Report Type: Spontaneous
  Country: US (occurrence: US)
  Receive Date: 20190410
  Receipt Date: 20190507
  Transmission Date: 20190711
  Serious: Yes (Other)
  Sender: FDA-Public Use
  Company Number: US-009507513-1904USA001672

PATIENT
  Age: 20 Year
  Sex: Female
  Weight: 50.34 kg

DRUGS (1)
  1. NEXPLANON [Suspect]
     Active Substance: ETONOGESTREL
     Dosage: 1 IMPLANT
     Route: 059
     Dates: start: 201808

REACTIONS (5)
  - Menstruation irregular [Unknown]
  - Device dislocation [Recovered/Resolved]
  - Device deployment issue [Recovered/Resolved]
  - Complication associated with device [Recovered/Resolved]
  - Complication of device removal [Recovered/Resolved]

NARRATIVE: CASE EVENT DATE: 201808
